FAERS Safety Report 24842723 (Version 1)
Quarter: 2025Q1

REPORT INFORMATION
  Report Type: Spontaneous
  Country: CN (occurrence: CN)
  Receive Date: 20250115
  Receipt Date: 20250115
  Transmission Date: 20250409
  Serious: Yes (Other)
  Sender: CHEPLAPHARM
  Company Number: CN-ROCHE-10000170630

PATIENT
  Age: 33 Year
  Sex: Female

DRUGS (4)
  1. CAPECITABINE [Suspect]
     Active Substance: CAPECITABINE
     Indication: Ovarian cancer
     Dates: start: 20231204
  2. OXALIPLATIN [Suspect]
     Active Substance: OXALIPLATIN
     Indication: Ovarian cancer
     Dates: start: 20231204
  3. IRINOTECAN [Suspect]
     Active Substance: IRINOTECAN
     Indication: Ovarian cancer
     Dates: start: 20240228
  4. BEVACIZUMAB [Suspect]
     Active Substance: BEVACIZUMAB
     Indication: Ovarian cancer
     Dates: start: 20240228

REACTIONS (2)
  - Neoplasm malignant [Unknown]
  - Off label use [Unknown]
